FAERS Safety Report 9104856 (Version 3)
Quarter: 2013Q4

REPORT INFORMATION
  Report Type: Report from Study
  Country: CA (occurrence: CA)
  Receive Date: 20130220
  Receipt Date: 20131129
  Transmission Date: 20140711
  Serious: Yes (Hospitalization, Other)
  Sender: FDA-Public Use
  Company Number: CA-ROCHE-1172843

PATIENT
  Age: 57 Year
  Sex: Female
  Weight: 68 kg

DRUGS (10)
  1. RITUXAN [Suspect]
     Indication: RHEUMATOID ARTHRITIS
     Dosage: DAY 1, 15
     Route: 042
     Dates: start: 20100203
  2. ACTONEL [Suspect]
     Indication: PRODUCT USED FOR UNKNOWN INDICATION
     Route: 065
  3. CELEBREX [Concomitant]
  4. FOLIC ACID [Concomitant]
  5. PANTOLOC [Concomitant]
  6. DIPHENHYDRAMINE HCL [Concomitant]
     Route: 048
     Dates: start: 20100203
  7. ACETAMINOPHEN [Concomitant]
     Route: 048
     Dates: start: 20100203
  8. METHOTREXATE [Concomitant]
     Route: 065
  9. PREDNISONE [Concomitant]
  10. METHYLPREDNISOLONE [Concomitant]
     Route: 042
     Dates: start: 20120203

REACTIONS (4)
  - Femur fracture [Recovered/Resolved]
  - Fall [Unknown]
  - Nerve compression [Recovering/Resolving]
  - Balance disorder [Unknown]
